FAERS Safety Report 4733395-X (Version None)
Quarter: 2005Q3

REPORT INFORMATION
  Report Type: 
  Country: None (occurrence: None)
  Receive Date: 20050729
  Receipt Date: 20050718
  Transmission Date: 20060218
  Serious: Yes (Disabling)
  Sender: FDA-Public Use
  Company Number: 11842

PATIENT
  Age: 66 Year
  Sex: Female

DRUGS (1)
  1. METHOTREXATE [Suspect]
     Indication: RHEUMATOID ARTHRITIS
     Dosage: 2.5 MG 3/WK, PO
     Route: 048

REACTIONS (9)
  - BLINDNESS [None]
  - BLOOD FOLATE DECREASED [None]
  - COLOUR VISION TESTS ABNORMAL [None]
  - DRUG TOXICITY [None]
  - HAEMOGLOBIN DECREASED [None]
  - OPTIC NEUROPATHY [None]
  - SCOTOMA [None]
  - VISUAL ACUITY TESTS ABNORMAL [None]
  - VISUAL FIELD DEFECT [None]
